FAERS Safety Report 20373566 (Version 1)
Quarter: 2022Q1

REPORT INFORMATION
  Report Type: Spontaneous
  Country: US (occurrence: US)
  Receive Date: 20220125
  Receipt Date: 20220125
  Transmission Date: 20220424
  Serious: No
  Sender: FDA-Public Use
  Company Number: US-ALLERGAN-2049230US

PATIENT
  Sex: Female

DRUGS (10)
  1. BYSTOLIC [Suspect]
     Active Substance: NEBIVOLOL HYDROCHLORIDE
     Indication: Blood pressure measurement
     Dosage: 5 MG, QD
     Route: 048
  2. HYDROCODONE/ACETAMINOPHEN          /00607101/ [Concomitant]
     Indication: Back pain
     Dosage: 1 DF, TID AS NEEDED
  3. HYDROCODONE/ACETAMINOPHEN          /00607101/ [Concomitant]
     Indication: Cancer pain
  4. BEVESPI AEROSPHERE [Concomitant]
     Active Substance: FORMOTEROL FUMARATE\GLYCOPYRROLATE
     Dosage: 2 PUFF, BID
  5. PROAIR HFA [Concomitant]
     Active Substance: ALBUTEROL SULFATE
     Dosage: 2 PUFF FOUR TIMES DAILY AS NEEDED
  6. VITAMIN B12 [Concomitant]
     Active Substance: CYANOCOBALAMIN
     Dosage: 10000 MG, QD
  7. BIOTIN [Concomitant]
     Active Substance: BIOTIN
     Dosage: 1 MG, QD
  8. WARFARIN SODIUM [Concomitant]
     Active Substance: WARFARIN SODIUM
     Dosage: 5 MG, QD
  9. ALPRAZOLAM [Concomitant]
     Active Substance: ALPRAZOLAM
     Indication: Anxiety
     Dosage: ONE AND A HALF TABLET (0.5 MG TABLET) THREE TIMES DAILY AS NEEDED
  10. CHOLECALCIFEROL [Concomitant]
     Active Substance: CHOLECALCIFEROL
     Dosage: 10000 UNITS, QD

REACTIONS (1)
  - Alopecia [Not Recovered/Not Resolved]
